FAERS Safety Report 23318573 (Version 1)
Quarter: 2023Q4

REPORT INFORMATION
  Report Type: Spontaneous
  Country: PT (occurrence: PT)
  Receive Date: 20231220
  Receipt Date: 20231220
  Transmission Date: 20240109
  Serious: Yes (Other)
  Sender: FDA-Public Use
  Company Number: None

PATIENT
  Age: 57 Year

DRUGS (1)
  1. ANASTROZOLE [Suspect]
     Active Substance: ANASTROZOLE
     Indication: Breast neoplasm
     Dosage: ID
     Route: 048
     Dates: start: 20230526, end: 20231115

REACTIONS (2)
  - Condition aggravated [Not Recovered/Not Resolved]
  - Retinitis pigmentosa [Not Recovered/Not Resolved]

NARRATIVE: CASE EVENT DATE: 20220526
